FAERS Safety Report 7331371-4 (Version None)
Quarter: 2011Q1

REPORT INFORMATION
  Report Type: 
  Country: None (occurrence: None)
  Receive Date: 20110304
  Receipt Date: 20110223
  Transmission Date: 20110831
  Serious: Yes (Hospitalization)
  Sender: FDA-Public Use
  Company Number: CA-JNJFOC-20110300300

PATIENT
  Sex: Female

DRUGS (3)
  1. METHOTREXATE [Concomitant]
  2. CELEBREX [Concomitant]
  3. SIMPONI [Suspect]
     Indication: RHEUMATOID ARTHRITIS
     Route: 058

REACTIONS (1)
  - RETINAL DETACHMENT [None]
